FAERS Safety Report 12289551 (Version 1)
Quarter: 2016Q2

REPORT INFORMATION
  Report Type: Spontaneous
  Country: US (occurrence: None)
  Receive Date: 20160420
  Receipt Date: 20160420
  Transmission Date: 20160815
  Serious: Yes (Disabling)
  Sender: FDA-Public Use
  Company Number: None

PATIENT
  Age: 20 Year
  Sex: Male
  Weight: 68.04 kg

DRUGS (5)
  1. MYORISAN [Suspect]
     Active Substance: ISOTRETINOIN
  2. ZOLOFT [Concomitant]
     Active Substance: SERTRALINE HYDROCHLORIDE
  3. XANEX [Concomitant]
  4. ACCUTANE [Concomitant]
     Active Substance: ISOTRETINOIN
  5. ABSORICA [Suspect]
     Active Substance: ISOTRETINOIN
     Indication: ACNE CYSTIC
     Dates: start: 20151231, end: 20160214

REACTIONS (14)
  - Depression [None]
  - Headache [None]
  - Anger [None]
  - Unevaluable event [None]
  - Dizziness [None]
  - Crying [None]
  - Panic attack [None]
  - Nausea [None]
  - Disturbance in attention [None]
  - Feeling abnormal [None]
  - Arthralgia [None]
  - Vision blurred [None]
  - Fear [None]
  - Migraine [None]

NARRATIVE: CASE EVENT DATE: 20160214
